FAERS Safety Report 25987679 (Version 1)
Quarter: 2025Q4

REPORT INFORMATION
  Report Type: Spontaneous
  Country: US (occurrence: US)
  Receive Date: 20251103
  Receipt Date: 20251103
  Transmission Date: 20260118
  Serious: No
  Sender: BAUSCH AND LOMB
  Company Number: US-BAUSCHBL-2025BNL030977

PATIENT
  Age: 62 Year
  Sex: Female

DRUGS (5)
  1. MIEBO [Suspect]
     Active Substance: PERFLUOROHEXYLOCTANE
     Indication: Dry eye
     Dosage: 1 DROP IN EACH EYE 4 TIMES A DAY
     Dates: start: 202510
  2. XIIDRA [Suspect]
     Active Substance: LIFITEGRAST
     Indication: Dry eye
     Dosage: 1 DROP IN BOTH EYES TWICE A DAY
     Route: 047
     Dates: start: 20251023
  3. CYCLOSPORINE [Concomitant]
     Active Substance: CYCLOSPORINE
     Indication: Product used for unknown indication
     Route: 047
  4. CARBOXYMETHYLCELLULOSE [Concomitant]
     Active Substance: CARBOXYMETHYLCELLULOSE
     Indication: Product used for unknown indication
     Route: 047
  5. LUMIGAN [Concomitant]
     Active Substance: BIMATOPROST
     Indication: Product used for unknown indication
     Route: 047

REACTIONS (6)
  - Burning sensation [Unknown]
  - Pain [Unknown]
  - Product use issue [Unknown]
  - Product knowledge deficit [Unknown]
  - Product packaging quantity issue [Unknown]
  - Product container issue [Unknown]

NARRATIVE: CASE EVENT DATE: 20251001
